FAERS Safety Report 7904856-7 (Version None)
Quarter: 2011Q4

REPORT INFORMATION
  Report Type: 
  Country: None (occurrence: None)
  Receive Date: 20111109
  Receipt Date: 20111027
  Transmission Date: 20120403
  Serious: Yes (Other)
  Sender: FDA-Public Use
  Company Number: PHHY2011DE88146

PATIENT
  Age: 54 Year
  Sex: Male

DRUGS (6)
  1. MYCOPHENOLATE MOFETIL (CELLCEPT) [Suspect]
     Dosage: UNK UKN, UNK
  2. STEROIDS NOS [Concomitant]
  3. VALGANCICLOVIR [Concomitant]
     Dosage: UNK UKN, UNK
  4. BASILIXIMAB [Suspect]
     Indication: PANCREAS TRANSPLANT
     Dosage: UNK UL, UNK
  5. TACROLIMUS [Concomitant]
  6. MYFORTIC [Suspect]
     Indication: PANCREAS TRANSPLANT
     Dosage: UNK UKN, UNK

REACTIONS (8)
  - LEUKOCYTOSIS [None]
  - STAPHYLOCOCCAL INFECTION [None]
  - GASTROINTESTINAL DISORDER [None]
  - PYREXIA [None]
  - MYALGIA [None]
  - C-REACTIVE PROTEIN INCREASED [None]
  - CHILLS [None]
  - SYSTEMIC INFLAMMATORY RESPONSE SYNDROME [None]
